FAERS Safety Report 8094645-8 (Version None)
Quarter: 2012Q1

REPORT INFORMATION
  Report Type: 
  Country: None (occurrence: None)
  Receive Date: 20120131
  Receipt Date: 20120123
  Transmission Date: 20120608
  Serious: No
  Sender: FDA-Public Use
  Company Number: US-ABBOTT-12P-163-0898723-00

PATIENT
  Sex: Female
  Weight: 38.59 kg

DRUGS (2)
  1. CREON [Suspect]
     Indication: PANCREATIC INSUFFICIENCY
     Dosage: 3 CAPSULES WITH EACH MEAL AND 1 CAPSUL WITH EACH SNACK
     Dates: start: 19900101
  2. CREON [Suspect]

REACTIONS (7)
  - FLATULENCE [None]
  - DIZZINESS [None]
  - PRODUCTIVE COUGH [None]
  - ABDOMINAL PAIN UPPER [None]
  - BLOOD GLUCOSE INCREASED [None]
  - DIABETES MELLITUS [None]
  - CONSTIPATION [None]
